FAERS Safety Report 9921069 (Version 3)
Quarter: 2014Q1

REPORT INFORMATION
  Report Type: Spontaneous
  Country: JP (occurrence: JP)
  Receive Date: 20140225
  Receipt Date: 20140313
  Transmission Date: 20141002
  Serious: Yes (Other)
  Sender: FDA-Public Use
  Company Number: JP-BRISTOL-MYERS SQUIBB COMPANY-20243473

PATIENT
  Age: 76 Year
  Sex: Male
  Weight: 58 kg

DRUGS (2)
  1. ELIQUIS [Suspect]
     Route: 048
     Dates: start: 20140209, end: 20140212
  2. WARFARIN POTASSIUM [Concomitant]
     Route: 048

REACTIONS (1)
  - Mental disorder [Recovered/Resolved]
